FAERS Safety Report 8207664-5 (Version None)
Quarter: 2012Q1

REPORT INFORMATION
  Report Type: 
  Country: None (occurrence: None)
  Receive Date: 20120314
  Receipt Date: 20120307
  Transmission Date: 20120608
  Serious: Yes (Hospitalization)
  Sender: FDA-Public Use
  Company Number: US-JNJFOC-20100604728

PATIENT
  Sex: Male

DRUGS (17)
  1. ABIRATERONE ACETATE [Suspect]
     Route: 048
     Dates: start: 20100702
  2. HYDROCHLOROTHIAZIDE [Concomitant]
     Indication: HYPERTENSION
     Route: 048
  3. LUPRON [Concomitant]
     Indication: HORMONE THERAPY
     Dosage: ROUTE UNSPECIFIED
     Route: 030
     Dates: start: 20050101
  4. PREDNISONE [Suspect]
     Indication: PROSTATE CANCER METASTATIC
     Route: 048
     Dates: start: 20100115
  5. SIMVASTATIN [Concomitant]
     Indication: HYPERCHOLESTEROLAEMIA
     Route: 048
  6. LUPRON [Concomitant]
     Route: 030
     Dates: start: 20100115
  7. AMLODIPINE [Concomitant]
     Indication: HYPERTENSION
     Route: 048
  8. ASPIRIN [Concomitant]
     Indication: CORONARY ARTERY DISEASE
     Route: 048
  9. VALSARTAN [Concomitant]
     Indication: HYPERTENSION
     Route: 048
  10. ABIRATERONE ACETATE [Suspect]
     Indication: PROSTATE CANCER METASTATIC
     Route: 048
     Dates: start: 20100115, end: 20100614
  11. MULTI-VITAMINS [Concomitant]
     Indication: NUTRITIONAL SUPPORT
     Route: 048
  12. PLAVIX [Concomitant]
     Indication: CORONARY ARTERY DISEASE
     Route: 048
     Dates: start: 20090401
  13. ZOMETA [Concomitant]
     Indication: BONE DISORDER
     Route: 042
     Dates: start: 20090529
  14. VITAMIN D [Concomitant]
     Indication: NUTRITIONAL SUPPORT
     Route: 048
     Dates: start: 20100108
  15. LUPRON [Concomitant]
     Route: 030
     Dates: start: 20100115
  16. CALCIUM COMPLEX [Concomitant]
     Indication: NUTRITIONAL SUPPORT
     Route: 048
  17. LUPRON [Concomitant]
     Indication: PROSTATE CANCER
     Dosage: ROUTE UNSPECIFIED
     Route: 030
     Dates: start: 20050101

REACTIONS (1)
  - CHOLECYSTITIS [None]
